FAERS Safety Report 21381703 (Version 1)
Quarter: 2022Q3

REPORT INFORMATION
  Report Type: Report from Study
  Country: CO (occurrence: CO)
  Receive Date: 20220927
  Receipt Date: 20220927
  Transmission Date: 20221027
  Serious: Yes (Other)
  Sender: FDA-Public Use
  Company Number: CO-BRISTOL-MYERS SQUIBB COMPANY-2022-111397

PATIENT
  Age: 58 Year
  Sex: Female
  Weight: 68 kg

DRUGS (2)
  1. ORENCIA [Suspect]
     Active Substance: ABATACEPT
     Indication: Rheumatoid arthritis
     Dosage: 750 MG/ML
     Route: 042
     Dates: start: 20150923, end: 2022
  2. ORENCIA [Suspect]
     Active Substance: ABATACEPT
     Dosage: 750 MG/ML
     Route: 042
     Dates: start: 2022

REACTIONS (2)
  - Angiopathy [Unknown]
  - Off label use [Unknown]
